FAERS Safety Report 13233363 (Version 3)
Quarter: 2017Q2

REPORT INFORMATION
  Report Type: Spontaneous
  Country: US (occurrence: US)
  Receive Date: 20170215
  Receipt Date: 20170531
  Transmission Date: 20170830
  Serious: Yes (Other)
  Sender: FDA-Public Use
  Company Number: US-009507513-1702USA005789

PATIENT
  Age: 68 Year
  Sex: Female
  Weight: 97.51 kg

DRUGS (16)
  1. PRAVASTATIN. [Concomitant]
     Active Substance: PRAVASTATIN
     Dosage: 20 MG/DAY
  2. JANUVIA [Suspect]
     Active Substance: SITAGLIPTIN PHOSPHATE
     Indication: DIABETES MELLITUS
     Dosage: 1 PILL DAY 1 DAY BY MOUTH
     Route: 048
     Dates: end: 20160120
  3. LANTUS [Concomitant]
     Active Substance: INSULIN GLARGINE
     Dosage: 40 UNIT, UNK
  4. CINNAMON. [Concomitant]
     Active Substance: CINNAMON
     Dosage: 100 MG 2 DAY
  5. DULOXETINE HYDROCHLORIDE. [Concomitant]
     Active Substance: DULOXETINE HYDROCHLORIDE
     Dosage: 100 MG/2 DAYS
  6. METOPROLOL. [Concomitant]
     Active Substance: METOPROLOL
     Dosage: 10 MG, UNK
  7. OMEPRAZOLE. [Concomitant]
     Active Substance: OMEPRAZOLE
     Dosage: 20 MG/DAY
  8. PRINIVIL [Concomitant]
     Active Substance: LISINOPRIL
     Dosage: 10 MG, UNK
  9. PIOGLITAZONE. [Concomitant]
     Active Substance: PIOGLITAZONE
     Dosage: 15 MG/DAY
  10. LORATADINE. [Concomitant]
     Active Substance: LORATADINE
     Dosage: 10 MG 24 H/DAY
     Route: 048
  11. AMLODIPINE [Concomitant]
     Active Substance: AMLODIPINE BESYLATE
     Dosage: 5 MG, UNK
  12. CLONAZEPAM. [Concomitant]
     Active Substance: CLONAZEPAM
     Dosage: 2 DAY/MG
  13. DULOXETINE HYDROCHLORIDE. [Concomitant]
     Active Substance: DULOXETINE HYDROCHLORIDE
     Dosage: 30 MG/DAY
  14. POTASSIUM CHLORIDE. [Concomitant]
     Active Substance: POTASSIUM CHLORIDE
     Dosage: 2 DAY/10 MG
  15. FUROSEMIDE. [Concomitant]
     Active Substance: FUROSEMIDE
     Dosage: 40 MG/DAY
  16. TYLENOL [Concomitant]
     Active Substance: ACETAMINOPHEN
     Indication: ARTHRITIS
     Dosage: 600 MG A DAY AT BEDTIME

REACTIONS (4)
  - Headache [Not Recovered/Not Resolved]
  - Depression [Not Recovered/Not Resolved]
  - Abdominal discomfort [Not Recovered/Not Resolved]
  - Irritability [Not Recovered/Not Resolved]

NARRATIVE: CASE EVENT DATE: 201601
